FAERS Safety Report 7772414-3 (Version None)
Quarter: 2011Q3

REPORT INFORMATION
  Report Type: 
  Country: None (occurrence: None)
  Receive Date: 20110922
  Receipt Date: 20101207
  Transmission Date: 20111222
  Serious: No
  Sender: FDA-Public Use
  Company Number: US-ASTRAZENECA-2010SE58125

PATIENT
  Age: 36 Year
  Sex: Male

DRUGS (8)
  1. PROZAC [Concomitant]
     Dates: start: 20100701
  2. LITHIUM [Concomitant]
     Dates: start: 20100701
  3. SEROQUEL XR [Suspect]
     Indication: ATTENTION DEFICIT/HYPERACTIVITY DISORDER
     Dosage: TITRATED FROM 150 MG TO 200 MG
     Route: 048
     Dates: start: 20100701
  4. SEROQUEL XR [Suspect]
     Route: 048
  5. SEROQUEL XR [Suspect]
     Indication: BIPOLAR DISORDER
     Dosage: TITRATED FROM 150 MG TO 200 MG
     Route: 048
     Dates: start: 20100701
  6. SEROQUEL XR [Suspect]
     Route: 048
  7. SEROQUEL XR [Suspect]
     Route: 048
  8. SEROQUEL XR [Suspect]
     Route: 048

REACTIONS (3)
  - VISUAL IMPAIRMENT [None]
  - SOMNOLENCE [None]
  - HYPERSOMNIA [None]
